FAERS Safety Report 23810955 (Version 1)
Quarter: 2024Q2

REPORT INFORMATION
  Report Type: Spontaneous
  Country: US (occurrence: US)
  Receive Date: 20240502
  Receipt Date: 20240502
  Transmission Date: 20240716
  Serious: No
  Sender: FDA-Public Use
  Company Number: US-EMERGENT BIOSOLUTIONS-24000051

PATIENT
  Sex: Male

DRUGS (8)
  1. CNJ-016 [Suspect]
     Active Substance: HUMAN VACCINIA VIRUS IMMUNE GLOBULIN
     Indication: Monkeypox
     Dosage: UNK, 3 DOSES
     Route: 042
  2. BRINCIDOFOVIR [Suspect]
     Active Substance: BRINCIDOFOVIR
     Indication: Monkeypox
     Dosage: UNK
     Route: 065
  3. TECOVIRIMAT [Concomitant]
     Active Substance: TECOVIRIMAT
     Indication: Monkeypox
     Dosage: UNK
     Route: 048
  4. TECOVIRIMAT [Concomitant]
     Active Substance: TECOVIRIMAT
     Dosage: UNK
     Route: 048
  5. TECOVIRIMAT [Concomitant]
     Active Substance: TECOVIRIMAT
     Dosage: UNK
     Route: 042
  6. BICTEGRAVIR\EMTRICITABINE\TENOFOVIR ALAFENAMIDE [Concomitant]
     Active Substance: BICTEGRAVIR\EMTRICITABINE\TENOFOVIR ALAFENAMIDE
     Indication: Monkeypox
     Dosage: UNK
     Route: 065
  7. CABOTEGRAVIR\RILPIVIRINE [Concomitant]
     Active Substance: CABOTEGRAVIR\RILPIVIRINE
     Indication: Monkeypox
     Dosage: UNK
     Route: 030
  8. CIDOFOVIR [Concomitant]
     Active Substance: CIDOFOVIR
     Indication: Monkeypox
     Dosage: UNK
     Route: 061

REACTIONS (1)
  - Off label use [Unknown]
